FAERS Safety Report 11889224 (Version 1)
Quarter: 2016Q1

REPORT INFORMATION
  Report Type: Spontaneous
  Country: GB (occurrence: GB)
  Receive Date: 20160105
  Receipt Date: 20160105
  Transmission Date: 20160526
  Serious: Yes (Other)
  Sender: FDA-Public Use
  Company Number: GB-BAYER-2015-440864

PATIENT
  Age: 53 Year
  Sex: Female
  Weight: 118.8 kg

DRUGS (12)
  1. PARACETAMOL [Concomitant]
     Active Substance: ACETAMINOPHEN
     Dosage: 1 G, 1/6HOURS
     Dates: start: 20141202
  2. CIPROFLOXACIN. [Suspect]
     Active Substance: CIPROFLOXACIN
     Indication: URINARY TRACT INFECTION
     Dosage: UNK
     Dates: start: 20150928
  3. ISOPROPYL MYRISTATE [Concomitant]
     Active Substance: ISOPROPYL MYRISTATE
     Dosage: UNK UNK, PRN
     Dates: start: 20150810, end: 20150811
  4. TRAMADOL. [Concomitant]
     Active Substance: TRAMADOL
     Dosage: 200 MG, BID
     Route: 048
     Dates: start: 20141202
  5. TIZANIDINE HYDROCHLORIDE. [Suspect]
     Active Substance: TIZANIDINE HYDROCHLORIDE
     Dosage: 2 MG, TID
     Route: 048
     Dates: start: 20141202
  6. CITALOPRAM [Concomitant]
     Active Substance: CITALOPRAM HYDROBROMIDE
     Dosage: 40 MG, QD
     Route: 048
     Dates: start: 20150414
  7. DIPROBASE [PARAFFIN, LIQUID,WHITE SOFT PARAFFIN] [Concomitant]
     Dosage: UNK, PRN
     Route: 061
     Dates: start: 20141205
  8. GABAPENTIN. [Concomitant]
     Active Substance: GABAPENTIN
     Dosage: 900 MG, TID
     Route: 048
     Dates: start: 20141202
  9. VESICARE [Concomitant]
     Active Substance: SOLIFENACIN SUCCINATE
     Dosage: 10 MG, QD
     Dates: start: 20141202
  10. OMEPRAZOLE. [Concomitant]
     Active Substance: OMEPRAZOLE
     Dosage: 20 MG, QD
     Route: 048
     Dates: start: 20141202
  11. LIGHT LIQUID PARAFFIN [Concomitant]
     Dosage: AS NECESSARY
     Dates: start: 20150810, end: 20150811
  12. NAPROXEN. [Concomitant]
     Active Substance: NAPROXEN
     Dosage: 500 MG, QD
     Dates: start: 20141202

REACTIONS (5)
  - Drug interaction [Unknown]
  - Abdominal tenderness [Recovered/Resolved]
  - Chest pain [Recovered/Resolved]
  - Hepatitis [Recovered/Resolved]
  - Liver function test abnormal [Recovered/Resolved]

NARRATIVE: CASE EVENT DATE: 20150918
